FAERS Safety Report 6621629-6 (Version None)
Quarter: 2010Q1

REPORT INFORMATION
  Report Type: 
  Country: None (occurrence: None)
  Receive Date: 20100309
  Receipt Date: 20100301
  Transmission Date: 20100710
  Serious: Yes (Hospitalization, Other)
  Sender: FDA-Public Use
  Company Number: US-AMGEN-QUU372078

PATIENT
  Sex: Female
  Weight: 136.2 kg

DRUGS (2)
  1. ENBREL [Suspect]
     Indication: RHEUMATOID ARTHRITIS
     Route: 058
     Dates: start: 20090716, end: 20091001
  2. METHOTREXATE [Concomitant]

REACTIONS (4)
  - ANIMAL BITE [None]
  - MASS [None]
  - SARCOIDOSIS [None]
  - WOUND INFECTION [None]
